FAERS Safety Report 6663376-0 (Version None)
Quarter: 2010Q1

REPORT INFORMATION
  Report Type: 
  Country: None (occurrence: None)
  Receive Date: 20100330
  Receipt Date: 20100330
  Transmission Date: 20100710
  Serious: Yes (Hospitalization, Other)
  Sender: FDA-Public Use
  Company Number: None

PATIENT
  Age: 69 Year
  Sex: Female
  Weight: 71.6683 kg

DRUGS (3)
  1. OMEPRAZOLE [Suspect]
     Indication: GASTRITIS
     Dosage: 1 CAPSULE DAILY PO
     Route: 048
     Dates: start: 20100205, end: 20100211
  2. OMEPRAZOLE [Suspect]
     Indication: GASTROINTESTINAL DISORDER
     Dosage: 1 CAPSULE DAILY PO
     Route: 048
     Dates: start: 20100205, end: 20100211
  3. OMEPRAZOLE [Suspect]
     Indication: GASTROOESOPHAGEAL REFLUX DISEASE
     Dosage: 1 CAPSULE DAILY PO
     Route: 048
     Dates: start: 20100205, end: 20100211

REACTIONS (7)
  - BACK PAIN [None]
  - DIARRHOEA [None]
  - DIZZINESS [None]
  - DYSPNOEA [None]
  - GASTROINTESTINAL PAIN [None]
  - NAUSEA [None]
  - TREMOR [None]
